FAERS Safety Report 6758072-5 (Version None)
Quarter: 2010Q2

REPORT INFORMATION
  Report Type: 
  Country: None (occurrence: None)
  Receive Date: 20100602
  Receipt Date: 20100526
  Transmission Date: 20101027
  Serious: Yes (Death)
  Sender: FDA-Public Use
  Company Number: 20108838

PATIENT
  Sex: Female

DRUGS (1)
  1. LIORESAL [Suspect]
     Indication: MUSCLE SPASTICITY
     Dosage: 443.1 MCG, DAILY, INTRATHECAL
     Route: 037

REACTIONS (8)
  - DISEASE COMPLICATION [None]
  - HYPERTONIA [None]
  - IRRITABILITY [None]
  - JOINT DISLOCATION [None]
  - MUSCULOSKELETAL STIFFNESS [None]
  - RESPIRATORY ARREST [None]
  - SPINAL DISORDER [None]
  - URINARY TRACT INFECTION [None]
